FAERS Safety Report 6917807-9 (Version None)
Quarter: 2010Q3

REPORT INFORMATION
  Report Type: 
  Country: None (occurrence: None)
  Receive Date: 20100810
  Receipt Date: 20100730
  Transmission Date: 20110219
  Serious: Yes (Other)
  Sender: FDA-Public Use
  Company Number: BR-ABBOTT-10P-020-0660432-00

PATIENT
  Sex: Female

DRUGS (6)
  1. AKINETON [Suspect]
     Indication: PRODUCT USED FOR UNKNOWN INDICATION
     Route: 048
     Dates: start: 20090101
  2. HALOPERIDOL [Suspect]
     Indication: HALLUCINATION
     Dates: start: 20100101
  3. CHLORPROMAZINE [Concomitant]
     Indication: PRODUCT USED FOR UNKNOWN INDICATION
     Route: 048
     Dates: start: 19960101
  4. PROMETHAZINE [Concomitant]
     Indication: PRODUCT USED FOR UNKNOWN INDICATION
     Route: 048
  5. DIAZEPAM [Concomitant]
     Indication: PRODUCT USED FOR UNKNOWN INDICATION
     Route: 048
     Dates: start: 19960101
  6. CARBAMAZEPINE [Concomitant]
     Indication: PRODUCT USED FOR UNKNOWN INDICATION
     Route: 048
     Dates: start: 19960101

REACTIONS (15)
  - AGITATION [None]
  - AMNESIA [None]
  - ANXIETY [None]
  - CONSTIPATION [None]
  - DELIRIUM [None]
  - DRY MOUTH [None]
  - HALLUCINATION [None]
  - HEART RATE INCREASED [None]
  - ILL-DEFINED DISORDER [None]
  - INSOMNIA [None]
  - MEMORY IMPAIRMENT [None]
  - MYDRIASIS [None]
  - NIGHTMARE [None]
  - PARTNER STRESS [None]
  - SOMNOLENCE [None]
